FAERS Safety Report 12045657 (Version 2)
Quarter: 2016Q1

REPORT INFORMATION
  Report Type: Spontaneous
  Country: US (occurrence: US)
  Receive Date: 20160208
  Receipt Date: 20160315
  Transmission Date: 20160526
  Serious: Yes (Other)
  Sender: FDA-Public Use
  Company Number: US-JNJFOC-20160203507

PATIENT
  Age: 59 Year
  Sex: Male
  Weight: 108.86 kg

DRUGS (8)
  1. FLOUROURACIL [Concomitant]
     Active Substance: FLUOROURACIL
     Route: 061
  2. FOLIC ACID. [Concomitant]
     Active Substance: FOLIC ACID
     Route: 048
     Dates: start: 20120101
  3. STELARA [Suspect]
     Active Substance: USTEKINUMAB
     Indication: PSORIASIS
     Route: 058
     Dates: start: 201505
  4. CLOBETASOL [Concomitant]
     Active Substance: CLOBETASOL
     Route: 061
     Dates: start: 20110210
  5. STELARA [Suspect]
     Active Substance: USTEKINUMAB
     Indication: PSORIASIS
     Dosage: FOR 4 YEARS
     Route: 058
     Dates: start: 20120103
  6. CRESTOR [Concomitant]
     Active Substance: ROSUVASTATIN CALCIUM
     Route: 048
     Dates: start: 20130101
  7. MOEXIPRIL [Concomitant]
     Active Substance: MOEXIPRIL HYDROCHLORIDE
     Route: 048
     Dates: start: 20130101
  8. NIASPAN [Concomitant]
     Active Substance: NIACIN
     Dosage: 1 AT NIGHT
     Route: 048
     Dates: start: 20130101

REACTIONS (1)
  - Squamous cell carcinoma [Recovered/Resolved]

NARRATIVE: CASE EVENT DATE: 201404
